FAERS Safety Report 7607774-7 (Version None)
Quarter: 2011Q3

REPORT INFORMATION
  Report Type: 
  Country: None (occurrence: None)
  Receive Date: 20110713
  Receipt Date: 20110530
  Transmission Date: 20111222
  Serious: Yes (Other)
  Sender: FDA-Public Use
  Company Number: PHHY2011JP47449

PATIENT
  Age: 29 Year
  Sex: Male

DRUGS (2)
  1. CYCLOSPORINE [Suspect]
     Dosage: UNK
  2. METHOTREXATE [Suspect]
     Dosage: UNK

REACTIONS (4)
  - ACUTE GRAFT VERSUS HOST DISEASE [None]
  - PAIN IN EXTREMITY [None]
  - POST TRANSPLANT DISTAL LIMB SYNDROME [None]
  - PRURITUS [None]
